FAERS Safety Report 10877425 (Version 1)
Quarter: 2015Q1

REPORT INFORMATION
  Report Type: Spontaneous
  Country: DE (occurrence: None)
  Receive Date: 20150224
  Receipt Date: 20150224
  Transmission Date: 20150721
  Serious: Yes (Other)
  Sender: FDA-Public Use
  Company Number: ABR_02054_2015

PATIENT
  Age: 44 Year
  Sex: Male

DRUGS (3)
  1. PHENPROCOUMON [Concomitant]
     Active Substance: PHENPROCOUMON
  2. ASPIRIN W/ DIPYRIDAMOLE [Concomitant]
  3. AMPHETAMINE (AMPHETAMINE) [Suspect]
     Active Substance: AMPHETAMINE
     Indication: PRODUCT USED FOR UNKNOWN INDICATION
     Dosage: DF

REACTIONS (4)
  - Drug screen positive [None]
  - Thrombosis in device [None]
  - Blood lactate dehydrogenase increased [None]
  - Drug abuse [None]
